FAERS Safety Report 6457363-5 (Version None)
Quarter: 2009Q4

REPORT INFORMATION
  Report Type: 
  Country: None (occurrence: None)
  Receive Date: 20091125
  Receipt Date: 20091120
  Transmission Date: 20100525
  Serious: Yes (Life-Threatening)
  Sender: FDA-Public Use
  Company Number: JP-BAYER-200914442BYL

PATIENT
  Age: 73 Year
  Sex: Female

DRUGS (2)
  1. ADALAT CC [Suspect]
     Indication: DRUG USE FOR UNKNOWN INDICATION
     Route: 048
     Dates: start: 20071101, end: 20080101
  2. UNKNOWN DRUG [Concomitant]

REACTIONS (1)
  - STEVENS-JOHNSON SYNDROME [None]
